FAERS Safety Report 25324660 (Version 2)
Quarter: 2025Q3

REPORT INFORMATION
  Report Type: Spontaneous
  Country: GB (occurrence: GB)
  Receive Date: 20250516
  Receipt Date: 20250908
  Transmission Date: 20251020
  Serious: Yes (Life-Threatening, Hospitalization, Other)
  Sender: ORGANON
  Company Number: GB-MLMSERVICE-20250501-PI495768-00119-1

PATIENT
  Sex: Male

DRUGS (10)
  1. MIRTAZAPINE [Suspect]
     Active Substance: MIRTAZAPINE
     Indication: Depression
  2. LAMOTRIGINE [Suspect]
     Active Substance: LAMOTRIGINE
     Indication: Depression
  3. METHADONE [Suspect]
     Active Substance: METHADONE HYDROCHLORIDE
     Indication: Depression
  4. DIAZEPAM [Suspect]
     Active Substance: DIAZEPAM
     Route: 048
  5. PREGABALIN [Suspect]
     Active Substance: PREGABALIN
     Route: 048
  6. COCAINE [Suspect]
     Active Substance: COCAINE
  7. FENTANYL [Suspect]
     Active Substance: FENTANYL
  8. CODEINE [Suspect]
     Active Substance: CODEINE
  9. MORPHINE [Suspect]
     Active Substance: MORPHINE
  10. NORDAZEPAM [Suspect]
     Active Substance: NORDAZEPAM

REACTIONS (2)
  - Drug abuse [Unknown]
  - Overdose [Unknown]
